FAERS Safety Report 9023124 (Version 1)
Quarter: 2013Q1

REPORT INFORMATION
  Report Type: Spontaneous
  Country: US (occurrence: US)
  Receive Date: 20130120
  Receipt Date: 20130120
  Transmission Date: 20140127
  Serious: No
  Sender: FDA-Public Use
  Company Number: US-ALLERGAN-1214981US

PATIENT
  Sex: Female

DRUGS (1)
  1. BOTOX? [Suspect]
     Indication: THORACIC OUTLET SYNDROME
     Dosage: 400 UNITS, SINGLE

REACTIONS (4)
  - Off label use [Unknown]
  - Asthenia [Unknown]
  - Disorientation [Unknown]
  - Erythema [Unknown]
